FAERS Safety Report 11110655 (Version 1)
Quarter: 2015Q2

REPORT INFORMATION
  Report Type: Spontaneous
  Country: GB (occurrence: GB)
  Receive Date: 20150513
  Receipt Date: 20150513
  Transmission Date: 20150821
  Serious: Yes (Other)
  Sender: FDA-Public Use
  Company Number: PHHY2015GB055596

PATIENT
  Age: 23 Year
  Sex: Female

DRUGS (3)
  1. PENICILLIN                         /02215301/ [Concomitant]
     Active Substance: PENICILLIN
     Indication: TONSILLITIS
     Dosage: 2 DF, QID
     Route: 048
     Dates: start: 20150405, end: 20150415
  2. NYSTATIN. [Suspect]
     Active Substance: NYSTATIN
     Indication: ORAL CANDIDIASIS
     Dosage: 1 ML, QID
     Route: 048
     Dates: start: 20150417, end: 20150419
  3. SOLPADEIN [Concomitant]
     Indication: HEADACHE
     Route: 048
     Dates: start: 201501

REACTIONS (4)
  - Peripheral swelling [Not Recovered/Not Resolved]
  - Hypersensitivity [Not Recovered/Not Resolved]
  - Rash generalised [Not Recovered/Not Resolved]
  - Pharyngeal oedema [Not Recovered/Not Resolved]

NARRATIVE: CASE EVENT DATE: 20150418
